FAERS Safety Report 9958963 (Version 1)
Quarter: 2014Q1

REPORT INFORMATION
  Report Type: Spontaneous
  Country: US (occurrence: None)
  Receive Date: 20140227
  Receipt Date: 20140227
  Transmission Date: 20141002
  Serious: Yes (Life-Threatening, Other)
  Sender: FDA-Public Use
  Company Number: 001673575A

PATIENT
  Age: 71 Year
  Sex: Female

DRUGS (1)
  1. MEANINGFUL BEAUTY ANTIOXIDANT DAY CREME WITH SPF 20 [Suspect]
     Dates: start: 20140130

REACTIONS (1)
  - Drug hypersensitivity [None]
